FAERS Safety Report 6872821-7 (Version None)
Quarter: 2010Q3

REPORT INFORMATION
  Report Type: 
  Country: None (occurrence: None)
  Receive Date: 20100721
  Receipt Date: 20100715
  Transmission Date: 20110219
  Serious: Yes (Other)
  Sender: FDA-Public Use
  Company Number: RB-11916-2010

PATIENT
  Sex: Male

DRUGS (1)
  1. SUBOXONE [Suspect]
     Indication: DRUG DEPENDENCE
     Dosage: (TOOK 16-24 MG DAILY SUBLINGUAL)
     Route: 060
     Dates: start: 20091001, end: 20100601

REACTIONS (1)
  - SUICIDAL IDEATION [None]
